FAERS Safety Report 8072755-9 (Version None)
Quarter: 2012Q1

REPORT INFORMATION
  Report Type: 
  Country: None (occurrence: None)
  Receive Date: 20120126
  Receipt Date: 20120118
  Transmission Date: 20120608
  Serious: Yes (Other)
  Sender: FDA-Public Use
  Company Number: GB-JNJFOC-20111108900

PATIENT
  Sex: Female

DRUGS (4)
  1. INFLIXIMAB, RECOMBINANT [Suspect]
     Indication: COLITIS ULCERATIVE
     Route: 042
  2. INFLIXIMAB, RECOMBINANT [Suspect]
     Dosage: 2ND LOADING DOSE
     Route: 042
     Dates: start: 20111130
  3. INFLIXIMAB, RECOMBINANT [Suspect]
     Route: 042
  4. INFLIXIMAB, RECOMBINANT [Suspect]
     Indication: PYODERMA
     Dosage: 2ND LOADING DOSE
     Route: 042
     Dates: start: 20111130

REACTIONS (4)
  - FEELING ABNORMAL [None]
  - TREMOR [None]
  - APHASIA [None]
  - INFUSION RELATED REACTION [None]
